FAERS Safety Report 23754252 (Version 1)
Quarter: 2024Q2

REPORT INFORMATION
  Report Type: Spontaneous
  Country: IN (occurrence: None)
  Receive Date: 20240418
  Receipt Date: 20240418
  Transmission Date: 20240716
  Serious: Yes (Hospitalization, Other)
  Sender: FDA-Public Use
  Company Number: IN-Unichem Pharmaceuticals (USA) Inc-UCM202402-000106

PATIENT
  Age: 36 Year
  Sex: Male

DRUGS (14)
  1. DIVALPROEX SODIUM [Suspect]
     Active Substance: DIVALPROEX SODIUM
     Indication: Affective disorder
     Route: 065
  2. CARBAMAZEPINE [Suspect]
     Active Substance: CARBAMAZEPINE
     Indication: Seizure
  3. PHENYTOIN SODIUM [Suspect]
     Active Substance: PHENYTOIN SODIUM
     Indication: Seizure
  4. CLONAZEPAM [Suspect]
     Active Substance: CLONAZEPAM
     Indication: Product used for unknown indication
  5. RISPERIDONE [Concomitant]
     Active Substance: RISPERIDONE
     Indication: Manic symptom
  6. LITHIUM [Concomitant]
     Active Substance: LITHIUM
     Indication: Manic symptom
  7. LITHIUM [Concomitant]
     Active Substance: LITHIUM
  8. QUETIAPINE [Concomitant]
     Active Substance: QUETIAPINE
     Indication: Affective disorder
     Dosage: UNKNOWN
  9. QUETIAPINE [Concomitant]
     Active Substance: QUETIAPINE
  10. LORAZEPAM [Concomitant]
     Active Substance: LORAZEPAM
     Indication: Seizure
     Dosage: UNKNOWN
     Route: 042
  11. OLANZAPINE [Concomitant]
     Active Substance: OLANZAPINE
     Indication: Manic symptom
  12. TRIHEXYPHENIDYL [Concomitant]
     Active Substance: TRIHEXYPHENIDYL
     Indication: Extrapyramidal disorder
  13. CLOBAZAM [Concomitant]
     Active Substance: CLOBAZAM
     Indication: Seizure
  14. LEVETIRACETAM [Concomitant]
     Active Substance: LEVETIRACETAM
     Indication: Seizure

REACTIONS (10)
  - Cerebellar atrophy [Recovering/Resolving]
  - Drug withdrawal convulsions [Recovering/Resolving]
  - Toxicity to various agents [Unknown]
  - Catatonia [Recovering/Resolving]
  - Hyperammonaemia [Recovering/Resolving]
  - Hyponatraemia [Recovering/Resolving]
  - Irritability [Recovering/Resolving]
  - Vomiting [Recovering/Resolving]
  - Ataxia [Recovering/Resolving]
  - Drug ineffective [Unknown]
